FAERS Safety Report 18159927 (Version 1)
Quarter: 2020Q3

REPORT INFORMATION
  Report Type: Spontaneous
  Country: US (occurrence: US)
  Receive Date: 20200818
  Receipt Date: 20200818
  Transmission Date: 20201103
  Serious: No
  Sender: FDA-Public Use
  Company Number: US-CELLTRION INC.-2020US023869

PATIENT

DRUGS (2)
  1. TRUXIMA [Suspect]
     Active Substance: RITUXIMAB-ABBS
     Indication: DIFFUSE LARGE B-CELL LYMPHOMA
     Dosage: 596 MG
     Route: 042
     Dates: start: 20200610
  2. TRUXIMA [Suspect]
     Active Substance: RITUXIMAB-ABBS
     Dosage: 595 MG
     Route: 042
     Dates: start: 20200706

REACTIONS (2)
  - Overdose [Unknown]
  - Product use issue [Unknown]
